FAERS Safety Report 14995483 (Version 1)
Quarter: 2018Q2

REPORT INFORMATION
  Report Type: Spontaneous
  Country: IT (occurrence: IT)
  Receive Date: 20180611
  Receipt Date: 20180611
  Transmission Date: 20180711
  Serious: Yes (Death)
  Sender: FDA-Public Use
  Company Number: IT-009507513-1806ITA001326

PATIENT
  Age: 76 Year
  Sex: Male

DRUGS (1)
  1. PEMBROLIZUMAB. [Suspect]
     Active Substance: PEMBROLIZUMAB
     Indication: METASTATIC MALIGNANT MELANOMA
     Dosage: 2 MG/KG, CYCLICAL
     Route: 041
     Dates: start: 20180216, end: 20180313

REACTIONS (4)
  - Ophthalmoplegia [Fatal]
  - Dysphonia [Fatal]
  - Blood creatine phosphokinase increased [Fatal]
  - Dysphagia [Fatal]
